FAERS Safety Report 5527941-6 (Version None)
Quarter: 2007Q4

REPORT INFORMATION
  Report Type: 
  Country: None (occurrence: None)
  Receive Date: 20071128
  Receipt Date: 20071109
  Transmission Date: 20080405
  Serious: Yes (Hospitalization)
  Sender: FDA-Public Use
  Company Number: FR-ROCHE-528717

PATIENT
  Age: 70 Year
  Sex: Male
  Weight: 67 kg

DRUGS (8)
  1. GANCICLOVIR SODIUM [Suspect]
     Indication: GLIOMA
     Dosage: GIVEN AS INFUSION.
     Route: 042
     Dates: start: 20070326, end: 20070409
  2. CEREPRO [Suspect]
     Indication: GLIOMA
     Dosage: SINGLE DOSE, 1 X 1012 VP. GENERIC REPORTED AS HERPES SIMPLEX VIRUS THYMIDINE KINASE.
     Route: 018
     Dates: start: 20070321, end: 20070321
  3. NOVOLOG MIX 70/30 [Concomitant]
     Dosage: TDD: 32U/12U.
     Route: 058
     Dates: start: 20070601
  4. LEXOMIL [Concomitant]
     Indication: INSOMNIA
     Route: 048
     Dates: start: 20070326
  5. MEDROL [Concomitant]
     Dates: start: 20070330
  6. LYRICA [Concomitant]
     Dates: start: 20070322
  7. EFFEXOR [Concomitant]
     Dates: start: 20070601
  8. ZOLPIDEM TARTRATE [Concomitant]
     Dates: start: 20070403

REACTIONS (1)
  - HYDROCEPHALUS [None]
